FAERS Safety Report 8198068-2 (Version None)
Quarter: 2012Q1

REPORT INFORMATION
  Report Type: 
  Country: None (occurrence: None)
  Receive Date: 20120309
  Receipt Date: 20120223
  Transmission Date: 20120608
  Serious: Yes (Other)
  Sender: FDA-Public Use
  Company Number: US-AMGEN-USASP2012010698

PATIENT
  Age: 87 Year
  Sex: Male
  Weight: 68.073 kg

DRUGS (3)
  1. XGEVA [Suspect]
     Indication: PROPHYLAXIS
     Dosage: 120 MG, Q4WK
     Route: 058
     Dates: start: 20110322
  2. TAXOTERE [Concomitant]
     Indication: PROSTATE CANCER
     Dosage: 71.6 MG, Q3WK
     Route: 042
     Dates: start: 20120119
  3. PREDNISONE [Concomitant]
     Indication: PROSTATE CANCER
     Dosage: 5 MG, BID
     Route: 048
     Dates: start: 20120119

REACTIONS (1)
  - BLOOD CALCIUM DECREASED [None]
